FAERS Safety Report 7937631-8 (Version None)
Quarter: 2011Q4

REPORT INFORMATION
  Report Type: 
  Country: None (occurrence: None)
  Receive Date: 20111123
  Receipt Date: 20111114
  Transmission Date: 20120403
  Serious: Yes (Hospitalization)
  Sender: FDA-Public Use
  Company Number: US-ASTRAZENECA-2011SE17122

PATIENT
  Age: 35 Year
  Sex: Male
  Weight: 74.8 kg

DRUGS (6)
  1. SEROQUEL [Suspect]
     Indication: SLEEP DISORDER
     Route: 048
     Dates: start: 20080101
  2. SEROQUEL [Suspect]
     Route: 048
  3. ANXIETY MEDICATION [Concomitant]
     Indication: SLEEP DISORDER
     Route: 048
  4. SEROQUEL [Suspect]
     Indication: MOOD SWINGS
     Route: 048
     Dates: start: 20080101
  5. SLEEP MEDICATION [Concomitant]
     Indication: SLEEP DISORDER
     Route: 048
  6. SEROQUEL [Suspect]
     Route: 048

REACTIONS (9)
  - INSOMNIA [None]
  - OFF LABEL USE [None]
  - GAIT DISTURBANCE [None]
  - LIGAMENT SPRAIN [None]
  - CONVULSION [None]
  - VICTIM OF CRIME [None]
  - DRUG DOSE OMISSION [None]
  - CARDIAC DISORDER [None]
  - BLOOD POTASSIUM DECREASED [None]
